FAERS Safety Report 4547154-4 (Version None)
Quarter: 2005Q1

REPORT INFORMATION
  Report Type: 
  Country: None (occurrence: None)
  Receive Date: 20050105
  Receipt Date: 20041217
  Transmission Date: 20050727
  Serious: Yes (Other)
  Sender: FDA-Public Use
  Company Number: USA040979360

PATIENT
  Age: 66 Year
  Sex: Female

DRUGS (4)
  1. FORTEO [Suspect]
     Indication: OSTEOPOROSIS
     Dosage: 20 UG DAY
     Dates: start: 20040301, end: 20041001
  2. METHOTREXATE [Concomitant]
  3. VALDECOXIB [Concomitant]
  4. VITAMIN E [Concomitant]

REACTIONS (7)
  - BACK PAIN [None]
  - CARPAL TUNNEL SYNDROME [None]
  - INJECTION SITE PAIN [None]
  - MEDICAL DEVICE COMPLICATION [None]
  - PHARMACEUTICAL PRODUCT COMPLAINT [None]
  - RETINAL DETACHMENT [None]
  - RETINAL TEAR [None]
